FAERS Safety Report 4531747-4 (Version None)
Quarter: 2004Q4

REPORT INFORMATION
  Report Type: 
  Country: None (occurrence: None)
  Receive Date: 20041220
  Receipt Date: 20040916
  Transmission Date: 20050328
  Serious: Yes (Hospitalization, Disabling)
  Sender: FDA-Public Use
  Company Number: PL-ROCHE-380874

PATIENT
  Age: 52 Year
  Sex: Male
  Weight: 85 kg

DRUGS (15)
  1. PEGASYS [Suspect]
     Route: 058
     Dates: start: 20031115, end: 20031215
  2. RIBAVIRIN [Suspect]
     Route: 048
     Dates: start: 20031115
  3. PEG-INTRON [Suspect]
     Route: 058
     Dates: start: 20031215, end: 20040215
  4. FENICORT [Concomitant]
  5. RANIGAST [Concomitant]
  6. ENCORTON [Concomitant]
  7. XYLOCAINE [Concomitant]
  8. DICLO (DICLOFENAC) [Concomitant]
  9. THIAMINE HCL [Concomitant]
  10. VITAMIN B-12 [Concomitant]
  11. VOLTAREN [Concomitant]
  12. ESSENTIALE [Concomitant]
  13. DOXYCYCLINE [Concomitant]
  14. PROFENID [Concomitant]
  15. UNKNOWN MEDICATION [Concomitant]
     Dosage: UNKNOWN DIABETIC MEDICATION
     Dates: end: 20040315

REACTIONS (13)
  - ACTIVITIES OF DAILY LIVING IMPAIRED [None]
  - ARTHRALGIA [None]
  - ASTHENIA [None]
  - DIFFICULTY IN WALKING [None]
  - DYSGRAPHIA [None]
  - MULTIPLE SCLEROSIS [None]
  - NEUROPATHY PERIPHERAL [None]
  - PARAESTHESIA [None]
  - PARESIS [None]
  - POLYNEUROPATHY [None]
  - PYREXIA [None]
  - TINNITUS [None]
  - VASCULITIS [None]
